FAERS Safety Report 14381440 (Version 1)
Quarter: 2018Q1

REPORT INFORMATION
  Report Type: Spontaneous
  Country: US (occurrence: US)
  Receive Date: 20180111
  Receipt Date: 20180111
  Transmission Date: 20180509
  Serious: No
  Sender: FDA-Public Use
  Company Number: None

PATIENT
  Sex: Male

DRUGS (1)
  1. TESTOSTERONECYP 200 MG PADDOCK [Suspect]
     Active Substance: TESTOSTERONE CYPIONATE
     Indication: HYPOGONADISM MALE
     Route: 030
     Dates: start: 20170303

REACTIONS (3)
  - Hypercoagulation [None]
  - Red blood cell count increased [None]
  - Therapy cessation [None]
